FAERS Safety Report 9311066 (Version 1)
Quarter: 2013Q2

REPORT INFORMATION
  Report Type: Spontaneous
  Country: US (occurrence: US)
  Receive Date: 20130528
  Receipt Date: 20130528
  Transmission Date: 20140414
  Serious: No
  Sender: FDA-Public Use
  Company Number: US-PFIZER INC-2013157718

PATIENT
  Sex: Female

DRUGS (3)
  1. ARTHROTEC [Suspect]
     Indication: BURSITIS
     Dosage: UNK
     Dates: start: 1998
  2. ARTHROTEC [Suspect]
     Indication: ARTHRITIS
     Dosage: 200/75, MCG/MG 2X/DAY
  3. LIPITOR [Concomitant]
     Indication: BLOOD CHOLESTEROL INCREASED
     Dosage: 20 MG, 1X/DAY

REACTIONS (3)
  - Fibromyalgia [Unknown]
  - Back disorder [Unknown]
  - Hepatic enzyme increased [Unknown]
